FAERS Safety Report 22211439 (Version 2)
Quarter: 2023Q2

REPORT INFORMATION
  Report Type: Spontaneous
  Country: DE (occurrence: DE)
  Receive Date: 20230414
  Receipt Date: 20230428
  Transmission Date: 20230721
  Serious: Yes (Hospitalization)
  Sender: FDA-Public Use
  Company Number: DE-BAYER-2023A045229

PATIENT
  Sex: Female

DRUGS (1)
  1. MIRENA [Suspect]
     Active Substance: LEVONORGESTREL
     Dosage: 20?G/DAY
     Route: 015
     Dates: start: 2019

REACTIONS (6)
  - Pregnancy with contraceptive device [None]
  - Abortion spontaneous [None]
  - Drug ineffective [None]
  - COVID-19 [None]
  - Illness [None]
  - Impaired work ability [None]
